FAERS Safety Report 15982689 (Version 1)
Quarter: 2019Q1

REPORT INFORMATION
  Report Type: Spontaneous
  Country: US (occurrence: US)
  Receive Date: 20190219
  Receipt Date: 20190219
  Transmission Date: 20190418
  Serious: No
  Sender: FDA-Public Use
  Company Number: US-ENDO PHARMACEUTICALS INC-2018-043980

PATIENT
  Sex: Male
  Weight: 81.63 kg

DRUGS (3)
  1. XIAFLEX [Suspect]
     Active Substance: COLLAGENASE CLOSTRIDIUM HISTOLYTICUM
     Dosage: UNK, UNKNOWN, RIGHT DIGIT
     Route: 026
     Dates: start: 2010
  2. XIAFLEX [Suspect]
     Active Substance: COLLAGENASE CLOSTRIDIUM HISTOLYTICUM
     Dosage: UNK, UNKNOWN, RIGHT HAND RING FINGER
     Route: 026
     Dates: start: 2010
  3. XIAFLEX [Suspect]
     Active Substance: COLLAGENASE CLOSTRIDIUM HISTOLYTICUM
     Indication: DUPUYTREN^S CONTRACTURE
     Dosage: UNK, UNKNOWN, LEFT MIDDLE FINGER
     Route: 026
     Dates: start: 2010

REACTIONS (3)
  - Disease recurrence [Unknown]
  - Dupuytren^s contracture [Unknown]
  - Drug ineffective [Unknown]
